FAERS Safety Report 4595071-6 (Version None)
Quarter: 2005Q1

REPORT INFORMATION
  Report Type: 
  Country: None (occurrence: None)
  Receive Date: 20050224
  Receipt Date: 20050216
  Transmission Date: 20050727
  Serious: Yes (Hospitalization)
  Sender: FDA-Public Use
  Company Number: 05-02-0253

PATIENT
  Age: 65 Year
  Sex: Female

DRUGS (1)
  1. CLOZAPINE [Suspect]
     Indication: SCHIZOPHRENIA
     Dosage: 25-500MG QD ORAL
     Route: 048
     Dates: start: 20010401

REACTIONS (2)
  - GALLBLADDER DISORDER [None]
  - SMALL INTESTINAL OBSTRUCTION [None]
